FAERS Safety Report 20910506 (Version 2)
Quarter: 2022Q2

REPORT INFORMATION
  Report Type: Spontaneous
  Country: US (occurrence: US)
  Receive Date: 20220603
  Receipt Date: 20220611
  Transmission Date: 20220721
  Serious: Yes (Hospitalization)
  Sender: FDA-Public Use
  Company Number: US-TEVA-2022-US-2042221

PATIENT
  Sex: Female

DRUGS (1)
  1. CYCLOSPORINE [Suspect]
     Active Substance: CYCLOSPORINE
     Indication: Aplastic anaemia
     Dosage: 50 MILLIGRAM DAILY;

REACTIONS (7)
  - Acute kidney injury [Unknown]
  - Anxiety [Unknown]
  - Product odour abnormal [Unknown]
  - Nausea [Unknown]
  - Vomiting [Unknown]
  - Dehydration [Unknown]
  - Blood creatinine increased [Unknown]
